FAERS Safety Report 13063211 (Version 1)
Quarter: 2016Q4

REPORT INFORMATION
  Report Type: Spontaneous
  Country: PE (occurrence: PE)
  Receive Date: 20161227
  Receipt Date: 20161227
  Transmission Date: 20170207
  Serious: Yes (Hospitalization)
  Sender: FDA-Public Use
  Company Number: PE-AMGEN-PERSP2016181451

PATIENT
  Age: 71 Year
  Sex: Female

DRUGS (10)
  1. PROLIA [Suspect]
     Active Substance: DENOSUMAB
     Dosage: 60 MG/ML, CYCLICAL
     Route: 058
     Dates: start: 20160307
  2. PROLIA [Suspect]
     Active Substance: DENOSUMAB
     Dosage: 60 MG/ML, CYCLICAL
     Route: 058
     Dates: start: 20140819
  3. PROLIA [Suspect]
     Active Substance: DENOSUMAB
     Indication: OSTEOPOROSIS
     Dosage: 60 MG/ML, CYCLICAL
     Route: 058
     Dates: start: 20111014
  4. PROLIA [Suspect]
     Active Substance: DENOSUMAB
     Dosage: 60 MG/ML, CYCLICAL
     Route: 058
     Dates: start: 201610
  5. PROLIA [Suspect]
     Active Substance: DENOSUMAB
     Dosage: 60 MG/ML, CYCLICAL
     Route: 058
     Dates: start: 20120314
  6. PROLIA [Suspect]
     Active Substance: DENOSUMAB
     Dosage: 60 MG/ML, CYCLICAL
     Route: 058
     Dates: start: 20150831
  7. AMIODARONE [Concomitant]
     Active Substance: AMIODARONE
     Indication: ARRHYTHMIA
     Dosage: UNK
     Dates: start: 2011
  8. PROLIA [Suspect]
     Active Substance: DENOSUMAB
     Dosage: 60 MG/ML, CYCLICAL
     Route: 058
     Dates: start: 20140219
  9. PROLIA [Suspect]
     Active Substance: DENOSUMAB
     Dosage: 60 MG/ML, CYCLICAL
     Route: 058
     Dates: start: 20150219
  10. PROLIA [Suspect]
     Active Substance: DENOSUMAB
     Dosage: 60 MG/ML, CYCLICAL
     Route: 058
     Dates: start: 20130819

REACTIONS (5)
  - Vomiting [Recovered/Resolved]
  - Chronic obstructive pulmonary disease [Recovered/Resolved]
  - Rib fracture [Not Recovered/Not Resolved]
  - Abdominal discomfort [Recovered/Resolved]
  - Inappropriate schedule of drug administration [Unknown]

NARRATIVE: CASE EVENT DATE: 201609
